FAERS Safety Report 13905245 (Version 1)
Quarter: 2017Q3

REPORT INFORMATION
  Report Type: Spontaneous
  Country: US (occurrence: US)
  Receive Date: 20170825
  Receipt Date: 20170825
  Transmission Date: 20171127
  Serious: No
  Sender: FDA-Public Use
  Company Number: US-009507513-1708USA010637

PATIENT
  Age: 70 Year
  Sex: Male

DRUGS (15)
  1. SODIUM CHLORIDE. [Suspect]
     Active Substance: SODIUM CHLORIDE
     Indication: BLADDER CANCER
     Dosage: STRENGHT:0.9 UNITS NOT PROVIDED
     Dates: start: 20161121
  2. FUROSEMIDE. [Concomitant]
     Active Substance: FUROSEMIDE
  3. TICE BCG [Suspect]
     Active Substance: BACILLUS CALMETTE-GUERIN SUBSTRAIN TICE LIVE ANTIGEN
     Indication: BLADDER CANCER
     Dosage: UNK
     Route: 043
     Dates: start: 20161121
  4. CARVEDILOL. [Concomitant]
     Active Substance: CARVEDILOL
  5. PANTOPRAZOLE [Concomitant]
     Active Substance: PANTOPRAZOLE
  6. ASPIRIN. [Concomitant]
     Active Substance: ASPIRIN
  7. PLAVIX [Concomitant]
     Active Substance: CLOPIDOGREL BISULFATE
  8. LEVEMIR [Concomitant]
     Active Substance: INSULIN DETEMIR
  9. MIRALAX [Concomitant]
     Active Substance: POLYETHYLENE GLYCOL 3350
  10. NOVOLIN [Concomitant]
     Active Substance: INSULIN HUMAN
  11. RENVELA [Concomitant]
     Active Substance: SEVELAMER CARBONATE
  12. CRESTOR [Concomitant]
     Active Substance: ROSUVASTATIN CALCIUM
  13. GLUCAGON. [Concomitant]
     Active Substance: GLUCAGON
  14. RENA VITE [Concomitant]
  15. TYLENOL [Concomitant]
     Active Substance: ACETAMINOPHEN

REACTIONS (4)
  - Dysuria [Recovering/Resolving]
  - Haematuria [Recovering/Resolving]
  - Underdose [Unknown]
  - Micturition urgency [Recovering/Resolving]

NARRATIVE: CASE EVENT DATE: 2017
